FAERS Safety Report 5878461-0 (Version None)
Quarter: 2008Q3

REPORT INFORMATION
  Report Type: 
  Country: None (occurrence: None)
  Receive Date: 20080910
  Receipt Date: 20080902
  Transmission Date: 20090109
  Serious: Yes (Other)
  Sender: FDA-Public Use
  Company Number: 2007316687

PATIENT
  Age: 10 Year
  Sex: Male
  Weight: 36.2878 kg

DRUGS (3)
  1. LISTERINE AGENT COOL BLUE GLACIER MINT (NO ACTIVE INGREDIENT) [Suspect]
     Indication: DENTAL DISORDER PROPHYLAXIS
     Dosage: 10 ML ONCE A DAY (1 IN 1 D) ,ORAL
     Route: 048
     Dates: start: 20061101, end: 20070413
  2. LISTERINE AGENT COOL BLUE GLACIER MINT (NO ACTIVE INGREDIENT) [Suspect]
  3. LISTERINE AGENT COOL BLUE GLACIER MINT (NO ACTIVE INGREDIENT) [Suspect]

REACTIONS (3)
  - PNEUMONIA [None]
  - RESPIRATORY TRACT INFECTION [None]
  - RESTRICTIVE PULMONARY DISEASE [None]
